FAERS Safety Report 13930030 (Version 1)
Quarter: 2017Q3

REPORT INFORMATION
  Report Type: Spontaneous
  Country: SK (occurrence: SK)
  Receive Date: 20170901
  Receipt Date: 20170901
  Transmission Date: 20171127
  Serious: Yes (Other)
  Sender: FDA-Public Use
  Company Number: SK-ALEXION-A201709375

PATIENT
  Sex: Female
  Weight: 113 kg

DRUGS (3)
  1. SOLIRIS [Suspect]
     Active Substance: ECULIZUMAB
     Indication: PAROXYSMAL NOCTURNAL HAEMOGLOBINURIA
     Dosage: UNK
     Route: 042
     Dates: start: 201411
  2. SOLIRIS [Suspect]
     Active Substance: ECULIZUMAB
     Indication: MYELODYSPLASTIC SYNDROME
  3. SOLIRIS [Suspect]
     Active Substance: ECULIZUMAB
     Indication: OFF LABEL USE

REACTIONS (5)
  - Blood lactate dehydrogenase increased [Unknown]
  - Off label use [Unknown]
  - Blood bilirubin increased [Unknown]
  - Haptoglobin decreased [Unknown]
  - Haemoglobinuria [Unknown]
